FAERS Safety Report 7009124-6 (Version None)
Quarter: 2010Q3

REPORT INFORMATION
  Report Type: 
  Country: None (occurrence: None)
  Receive Date: 20100923
  Receipt Date: 20100902
  Transmission Date: 20110219
  Serious: Yes (Hospitalization)
  Sender: FDA-Public Use
  Company Number: US-JNJFOC-20100906315

PATIENT
  Age: 52 Year
  Sex: Female
  Weight: 89.81 kg

DRUGS (2)
  1. MOTRIN [Suspect]
     Route: 065
  2. MOTRIN [Suspect]
     Indication: PRODUCT USED FOR UNKNOWN INDICATION
     Route: 065

REACTIONS (3)
  - BLOOD PRESSURE INCREASED [None]
  - INNER EAR DISORDER [None]
  - TRANSIENT ISCHAEMIC ATTACK [None]
